FAERS Safety Report 7727066-5 (Version None)
Quarter: 2011Q3

REPORT INFORMATION
  Report Type: 
  Country: None (occurrence: None)
  Receive Date: 20110902
  Receipt Date: 20110823
  Transmission Date: 20111222
  Serious: Yes (Hospitalization)
  Sender: FDA-Public Use
  Company Number: US-JNJFOC-20101208302

PATIENT
  Sex: Female
  Weight: 91.16 kg

DRUGS (13)
  1. NEXIUM [Concomitant]
     Dates: start: 20100907, end: 20101020
  2. FUROSEMIDE [Concomitant]
     Dates: start: 20040101
  3. ALBUTEROL SULFATE AUTOHALER [Concomitant]
     Dates: start: 20000101
  4. GLUCOTROL [Concomitant]
     Dates: start: 20090505
  5. ZYRTEC [Concomitant]
     Dates: start: 20000101
  6. CENTRUM MULTIVITAMINS [Concomitant]
     Dates: start: 19870101
  7. NORVASC [Concomitant]
     Dates: start: 20080415
  8. IBUPROFEN [Suspect]
     Indication: OSTEOARTHRITIS
     Route: 048
     Dates: start: 20070907, end: 20101020
  9. CLONIDINE [Concomitant]
     Dates: start: 20090505
  10. LOTREL [Concomitant]
     Dates: start: 20050101
  11. CALCIUM CARBONATE [Concomitant]
     Dates: start: 20060801
  12. BENAZEPRIL HYDROCHLORIDE [Concomitant]
     Dates: start: 20080415
  13. METFORMIN HCL [Concomitant]
     Dates: start: 20090505

REACTIONS (1)
  - COLONIC POLYP [None]
